FAERS Safety Report 24629622 (Version 1)
Quarter: 2024Q4

REPORT INFORMATION
  Report Type: Spontaneous
  Country: DE (occurrence: DE)
  Receive Date: 20241118
  Receipt Date: 20241118
  Transmission Date: 20250114
  Serious: Yes (Death, Other)
  Sender: Kenvue
  Company Number: DE-KENVUE CANADA INC.-20241103778

PATIENT

DRUGS (2)
  1. IMODIUM [Interacting]
     Active Substance: LOPERAMIDE HYDROCHLORIDE
     Indication: Diarrhoea
     Dosage: TOOK A TOTAL OF THREE TABLETS OF 2 MG EACH
     Route: 065
  2. QUININE [Interacting]
     Active Substance: QUININE
     Indication: Product used for unknown indication
     Route: 065

REACTIONS (5)
  - Drug interaction [Fatal]
  - Brain death [Fatal]
  - Loss of consciousness [Fatal]
  - Fatigue [Fatal]
  - Vomiting [Fatal]
